FAERS Safety Report 9311390 (Version 1)
Quarter: 2013Q2

REPORT INFORMATION
  Report Type: Spontaneous
  Country: ES (occurrence: ES)
  Receive Date: 20130528
  Receipt Date: 20130528
  Transmission Date: 20140414
  Serious: Yes (Hospitalization)
  Sender: FDA-Public Use
  Company Number: ES-JNJFOC-20130509615

PATIENT
  Age: 77 Year
  Sex: Female

DRUGS (4)
  1. RISPERDAL [Suspect]
     Indication: DEPRESSION
     Route: 048
     Dates: start: 201202, end: 20120409
  2. ZALDIAR [Suspect]
     Indication: OSTEOARTHRITIS
     Dosage: C/8-12H
     Route: 048
     Dates: end: 20120409
  3. ZALDIAR [Suspect]
     Indication: OSTEOARTHRITIS
     Dosage: EVERY 8 HOURS
     Route: 048
  4. ZALDIAR [Suspect]
     Indication: OSTEOARTHRITIS
     Route: 048

REACTIONS (5)
  - Parkinsonism [Recovered/Resolved]
  - Cognitive disorder [Recovered/Resolved]
  - Hallucinations, mixed [Recovered/Resolved]
  - Agitation [Recovered/Resolved]
  - Disorientation [Recovered/Resolved]
